FAERS Safety Report 5341727-7 (Version None)
Quarter: 2007Q2

REPORT INFORMATION
  Report Type: 
  Country: None (occurrence: None)
  Receive Date: 20070530
  Receipt Date: 20070517
  Transmission Date: 20071010
  Serious: Yes (Hospitalization)
  Sender: FDA-Public Use
  Company Number: 070517-0000521

PATIENT
  Age: 32 Year
  Sex: Female

DRUGS (3)
  1. DACTINOMYCIN [Suspect]
     Indication: CHORIOCARCINOMA
     Dosage: IV
     Route: 042
  2. METHOTREXATE [Suspect]
     Indication: CHORIOCARCINOMA
  3. ETOPOSIDE [Suspect]
     Indication: CHORIOCARCINOMA

REACTIONS (2)
  - TUMOUR NECROSIS [None]
  - UTERINE HAEMORRHAGE [None]
